FAERS Safety Report 9769471 (Version 3)
Quarter: 2014Q1

REPORT INFORMATION
  Report Type: Report from Study
  Country: DE (occurrence: DE)
  Receive Date: 20131218
  Receipt Date: 20140131
  Transmission Date: 20141002
  Serious: Yes (Hospitalization)
  Sender: FDA-Public Use
  Company Number: DE-ROCHE-1264521

PATIENT
  Age: 71 Year
  Sex: Female
  Weight: 73 kg

DRUGS (5)
  1. RITUXIMAB [Suspect]
     Indication: RHEUMATOID ARTHRITIS
     Route: 065
     Dates: start: 20121112
  2. RITUXIMAB [Suspect]
     Route: 065
     Dates: start: 20130612
  3. RITUXIMAB [Suspect]
     Route: 065
     Dates: start: 20130801
  4. RITUXIMAB [Suspect]
     Route: 065
     Dates: start: 20130808
  5. RITUXIMAB [Suspect]
     Route: 065
     Dates: start: 20130724

REACTIONS (2)
  - Lung infiltration [Recovering/Resolving]
  - Vasculitis [Recovering/Resolving]
